FAERS Safety Report 6303244-7 (Version None)
Quarter: 2009Q3

REPORT INFORMATION
  Report Type: 
  Country: None (occurrence: None)
  Receive Date: 20090810
  Receipt Date: 20090316
  Transmission Date: 20100115
  Serious: No
  Sender: FDA-Public Use
  Company Number: A0771869A

PATIENT
  Age: 39 Year
  Sex: Female
  Weight: 52.3 kg

DRUGS (2)
  1. PAROXETINE HCL [Suspect]
     Indication: DEPRESSION
     Dosage: 20MG PER DAY
     Route: 048
     Dates: start: 20080301
  2. SEROQUEL [Concomitant]

REACTIONS (1)
  - DIZZINESS [None]
